FAERS Safety Report 8155119-9 (Version None)
Quarter: 2012Q1

REPORT INFORMATION
  Report Type: 
  Country: None (occurrence: None)
  Receive Date: 20120221
  Receipt Date: 20120217
  Transmission Date: 20120608
  Serious: Yes (Death, Hospitalization)
  Sender: FDA-Public Use
  Company Number: DE-ROCHE-1009730

PATIENT
  Age: 54 Year
  Sex: Male
  Weight: 88 kg

DRUGS (11)
  1. METAMIZOL [Concomitant]
     Dates: start: 20111017
  2. DEXAMETHASONE SODIUM PHOSPHATE [Concomitant]
     Dates: start: 20111026, end: 20111121
  3. RESTEX [Concomitant]
     Dosage: 100/25 MG
     Dates: start: 20111025
  4. FENTANYL [Concomitant]
     Dosage: 12 MG/HOUR
     Dates: start: 20111017, end: 20111121
  5. PANTOPRAZOLE [Concomitant]
     Dates: start: 20111027
  6. VEMURAFENIB [Suspect]
     Indication: METASTATIC MALIGNANT MELANOMA
     Dosage: LAST DOS EPRIOR TO SAE 21 NOV 2011
     Route: 048
     Dates: start: 20111101
  7. IBUPROFEN [Concomitant]
     Dates: start: 20111027, end: 20111122
  8. MOVIPREP [Concomitant]
     Dates: start: 20111017
  9. ZOLEDRONIC ACID [Concomitant]
     Dates: start: 20111017
  10. FENTANYL [Concomitant]
     Dosage: 25 UG/H
     Dates: start: 20111121
  11. ZOPICLON [Concomitant]
     Dates: start: 20111025

REACTIONS (3)
  - HYDROCEPHALUS [None]
  - GENERAL PHYSICAL HEALTH DETERIORATION [None]
  - ANAEMIA [None]
